FAERS Safety Report 5877066-5 (Version None)
Quarter: 2008Q3

REPORT INFORMATION
  Report Type: 
  Country: None (occurrence: None)
  Receive Date: 20080910
  Receipt Date: 20080903
  Transmission Date: 20090109
  Serious: Yes (Death, Hospitalization)
  Sender: FDA-Public Use
  Company Number: PHBS2008US05609

PATIENT
  Age: 49 Year
  Sex: Male

DRUGS (6)
  1. CYCLOSPORINE [Suspect]
     Indication: LUNG TRANSPLANT
  2. PREDNISONE TAB [Suspect]
     Indication: LUNG TRANSPLANT
  3. FLUCONAZOLE [Concomitant]
  4. ACYCLOVIR [Concomitant]
  5. SULFAMETHOXAZOLE AND TRIMETHOPRIM [Concomitant]
  6. AMPHOTERICIN B [Concomitant]

REACTIONS (18)
  - ACUTE RESPIRATORY FAILURE [None]
  - ANASTOMOTIC COMPLICATION [None]
  - BRONCHIAL ANASTOMOSIS [None]
  - BRONCHIAL FISTULA [None]
  - BRONCHIAL OBSTRUCTION [None]
  - BRONCHITIS [None]
  - CANDIDIASIS [None]
  - DYSPNOEA [None]
  - ENDOTRACHEAL INTUBATION [None]
  - EXCESSIVE GRANULATION TISSUE [None]
  - FORCED EXPIRATORY VOLUME DECREASED [None]
  - HAEMOPTYSIS [None]
  - PSEUDOMONAS INFECTION [None]
  - STENT PLACEMENT [None]
  - STENT REMOVAL [None]
  - SURGERY [None]
  - THERAPEUTIC PROCEDURE [None]
  - WOUND DEHISCENCE [None]
